FAERS Safety Report 25139744 (Version 2)
Quarter: 2025Q3

REPORT INFORMATION
  Report Type: Spontaneous
  Country: JP (occurrence: JP)
  Receive Date: 20250331
  Receipt Date: 20250803
  Transmission Date: 20251021
  Serious: Yes (Other)
  Sender: ALEXION PHARMACEUTICALS
  Company Number: JP-ASTRAZENECA-250029156_064320_P_1

PATIENT
  Sex: Female

DRUGS (2)
  1. ANDEXXA [Suspect]
     Active Substance: ANDEXANET ALFA
     Indication: Haemorrhage intracranial
  2. ANDEXXA [Suspect]
     Active Substance: ANDEXANET ALFA

REACTIONS (1)
  - Altered state of consciousness [Unknown]
